FAERS Safety Report 25372263 (Version 1)
Quarter: 2025Q2

REPORT INFORMATION
  Report Type: Spontaneous
  Country: IN (occurrence: IN)
  Receive Date: 20250529
  Receipt Date: 20250529
  Transmission Date: 20250717
  Serious: Yes (Other)
  Sender: ALEXION PHARMACEUTICALS
  Company Number: IN-ASTRAZENECA-202505IND021837IN

PATIENT

DRUGS (7)
  1. TAGRISSO [Suspect]
     Active Substance: OSIMERTINIB
     Dosage: 80 MILLIGRAM, QD
  2. METOCLOPRAMIDE HYDROCHLORIDE [Concomitant]
     Active Substance: METOCLOPRAMIDE HYDROCHLORIDE
     Dosage: UNK, TID, X3DAYS
  3. Domstal [Concomitant]
     Indication: Nausea
  4. Domstal [Concomitant]
     Indication: Vomiting
  5. Lopez [Concomitant]
     Indication: Insomnia
  6. Pan [Concomitant]
     Dosage: 40 MILLIGRAM, QD, 5 DAYS
  7. CHLORHEXIDINE [Concomitant]
     Active Substance: CHLORHEXIDINE

REACTIONS (1)
  - Malignant neoplasm progression [Unknown]
